FAERS Safety Report 10242533 (Version 1)
Quarter: 2014Q2

REPORT INFORMATION
  Report Type: Spontaneous
  Country: DE (occurrence: DE)
  Receive Date: 20140617
  Receipt Date: 20140617
  Transmission Date: 20141212
  Serious: Yes (Hospitalization)
  Sender: FDA-Public Use
  Company Number: DE-MYLANLABS-2014S1013344

PATIENT
  Age: 24 Year
  Sex: Male
  Weight: 73 kg

DRUGS (8)
  1. CITALOPRAM [Suspect]
     Dosage: 20 MG
     Route: 048
     Dates: start: 201312, end: 20140122
  2. CITALOPRAM [Suspect]
     Dosage: 40 MG
     Route: 048
     Dates: start: 20140123, end: 20140203
  3. CITALOPRAM [Suspect]
     Dosage: 20 MG
     Route: 048
     Dates: start: 20140204, end: 20140210
  4. CITALOPRAM [Suspect]
     Dosage: 10 MG
     Route: 048
     Dates: start: 20140211, end: 20140213
  5. VENLAFAXIN [Suspect]
     Dosage: 37.5 MG
     Route: 048
     Dates: start: 20140204, end: 20140210
  6. VENLAFAXIN [Suspect]
     Dosage: 75 MG
     Route: 048
     Dates: start: 20140211, end: 20140213
  7. VIANI [Concomitant]
     Dosage: 25 MG SALMETEROL / 125 MG FLUTICASONE SEIT JAHREN
     Route: 048
  8. SALBUTAMOL [Concomitant]
     Dosage: SEIT JAHREN
     Route: 048

REACTIONS (2)
  - Blood creatine phosphokinase increased [Recovering/Resolving]
  - Aspartate aminotransferase increased [Recovered/Resolved]
